FAERS Safety Report 5311705-2 (Version None)
Quarter: 2007Q2

REPORT INFORMATION
  Report Type: 
  Country: None (occurrence: None)
  Receive Date: 20070430
  Receipt Date: 20070424
  Transmission Date: 20071010
  Serious: Yes (Death, Life-Threatening, Hospitalization)
  Sender: FDA-Public Use
  Company Number: HQWYE948109APR07

PATIENT
  Sex: Female
  Weight: 43 kg

DRUGS (7)
  1. RHEUMATREX [Suspect]
     Indication: RHEUMATOID ARTHRITIS
     Route: 048
     Dates: start: 20050913, end: 20070325
  2. CYTOTEC [Suspect]
     Dosage: UNKNOWN
     Route: 048
     Dates: start: 20040511, end: 20070328
  3. ARTANE [Suspect]
     Dosage: UNKNOWN
     Route: 048
     Dates: start: 20061110, end: 20070328
  4. PREDNISOLONE [Suspect]
     Dosage: UNKNOWN
     Route: 048
     Dates: start: 20040511, end: 20070328
  5. RISPERDAL [Suspect]
     Dosage: UNKNOWN
     Route: 048
     Dates: start: 20061110, end: 20070328
  6. LIVALO [Suspect]
     Dosage: UNKNOWN
     Route: 048
     Dates: start: 20040325, end: 20070328
  7. NU-LOTAN [Suspect]
     Dosage: UNKNOWN
     Route: 048
     Dates: start: 20051214, end: 20070328

REACTIONS (11)
  - CHOKING [None]
  - CONDITION AGGRAVATED [None]
  - DISSEMINATED INTRAVASCULAR COAGULATION [None]
  - HAEMORRHAGE SUBCUTANEOUS [None]
  - LISTLESS [None]
  - MELAENA [None]
  - MENTAL STATUS CHANGES [None]
  - MULTI-ORGAN FAILURE [None]
  - MYELODYSPLASTIC SYNDROME [None]
  - OEDEMA PERIPHERAL [None]
  - PANCYTOPENIA [None]
